FAERS Safety Report 23564548 (Version 1)
Quarter: 2024Q1

REPORT INFORMATION
  Report Type: Spontaneous
  Country: CA (occurrence: CA)
  Receive Date: 20240226
  Receipt Date: 20240226
  Transmission Date: 20240410
  Serious: Yes (Other)
  Sender: FDA-Public Use
  Company Number: CA-SAMSUNG BIOEPIS-SB-2024-05739

PATIENT
  Age: 57 Year
  Sex: Male
  Weight: 123 kg

DRUGS (1)
  1. RENFLEXIS [Suspect]
     Active Substance: INFLIXIMAB-ABDA
     Indication: Prostatic specific antigen
     Dosage: POWDER FOR SOLUTION INTRAVENOUS
     Route: 042

REACTIONS (4)
  - Chills [Unknown]
  - Skin warm [Unknown]
  - Tremor [Unknown]
  - Product use in unapproved indication [Unknown]
